FAERS Safety Report 7797137-6 (Version None)
Quarter: 2011Q4

REPORT INFORMATION
  Report Type: 
  Country: None (occurrence: None)
  Receive Date: 20111005
  Receipt Date: 20110923
  Transmission Date: 20120403
  Serious: Yes (Other)
  Sender: FDA-Public Use
  Company Number: SE-ROCHE-801154

PATIENT
  Age: 52 Year
  Sex: Female

DRUGS (2)
  1. AVASTIN [Suspect]
     Indication: LUNG NEOPLASM MALIGNANT
     Route: 065
     Dates: start: 20110101, end: 20110801
  2. EVEROLIMUS [Concomitant]

REACTIONS (2)
  - THROMBOTIC THROMBOCYTOPENIC PURPURA [None]
  - THROMBOTIC MICROANGIOPATHY [None]
